FAERS Safety Report 10452326 (Version 1)
Quarter: 2014Q3

REPORT INFORMATION
  Report Type: Spontaneous
  Country: JP (occurrence: JP)
  Receive Date: 20140915
  Receipt Date: 20140915
  Transmission Date: 20150326
  Serious: No
  Sender: FDA-Public Use
  Company Number: PHHY2010JP097046

PATIENT
  Sex: Male

DRUGS (1)
  1. TASIGNA [Suspect]
     Active Substance: NILOTINIB
     Indication: CHRONIC MYELOID LEUKAEMIA
     Dosage: 400 MG, UNK
     Dates: start: 20101126

REACTIONS (4)
  - Diarrhoea [Unknown]
  - Electrocardiogram QT prolonged [Unknown]
  - Blood creatine phosphokinase increased [Unknown]
  - Vomiting [Unknown]
